FAERS Safety Report 22392561 (Version 2)
Quarter: 2023Q2

REPORT INFORMATION
  Report Type: Spontaneous
  Country: US (occurrence: US)
  Receive Date: 20230601
  Receipt Date: 20230609
  Transmission Date: 20230722
  Serious: Yes (Hospitalization, Other)
  Sender: FDA-Public Use
  Company Number: US-AMAROX PHARMA GMBH-HET2023US01495

PATIENT
  Age: 69 Year
  Sex: Male

DRUGS (6)
  1. LEVOFLOXACIN [Suspect]
     Active Substance: LEVOFLOXACIN
     Indication: Cough
     Dosage: 500 MILLIGRAM, INTERMITTENT 5-DAY COURSES
     Route: 065
  2. PROBIOTICS NOS [Suspect]
     Active Substance: PROBIOTICS NOS
     Indication: Colitis ulcerative
     Dosage: 550 MILLIGRAM, QD
     Route: 065
  3. PROBIOTICS NOS [Suspect]
     Active Substance: PROBIOTICS NOS
     Indication: Probiotic therapy
  4. PREDNISONE [Suspect]
     Active Substance: PREDNISONE
     Indication: Cough
     Dosage: 40 MILLIGRAM, 2.5-MONTH COURSE OF ORAL PREDNISONE (20?40MG)
     Route: 048
  5. PREDNISONE [Suspect]
     Active Substance: PREDNISONE
     Dosage: 20 MILLIGRAM, 2.5-MONTH COURSE OF ORAL PREDNISONE (20?40MG)
     Route: 048
  6. BALSALAZIDE [Concomitant]
     Active Substance: BALSALAZIDE
     Indication: Colitis ulcerative
     Dosage: 750 MILLIGRAM, BID
     Route: 065

REACTIONS (7)
  - Septic cerebral embolism [Recovered/Resolved]
  - Septic shock [Recovered/Resolved]
  - Bacterial translocation [Recovered/Resolved]
  - Gastrointestinal bacterial infection [Recovered/Resolved]
  - Lactobacillus bacteraemia [Recovered/Resolved]
  - Subacute endocarditis [Recovered/Resolved]
  - Prosthetic valve endocarditis [Recovered/Resolved]
